FAERS Safety Report 8273779-9 (Version None)
Quarter: 2012Q2

REPORT INFORMATION
  Report Type: 
  Country: None (occurrence: None)
  Receive Date: 20120411
  Receipt Date: 20120402
  Transmission Date: 20120825
  Serious: Yes (Hospitalization)
  Sender: FDA-Public Use
  Company Number: FR-ASTRAZENECA-2012SE22468

PATIENT
  Age: 91 Year
  Sex: Male

DRUGS (9)
  1. STABLON [Suspect]
     Route: 048
  2. ATACAND [Suspect]
     Route: 048
  3. DIGOXIN [Suspect]
  4. FUROSEMIDE [Suspect]
     Route: 048
  5. QUINISEDINE [Suspect]
     Route: 048
  6. ASPIRIN [Suspect]
     Route: 048
  7. CETORNAN [Suspect]
     Route: 048
     Dates: end: 20120305
  8. FELODIPINE [Suspect]
     Route: 048
     Dates: end: 20120305
  9. ALLOPURINOL [Suspect]
     Route: 048
     Dates: end: 20120305

REACTIONS (1)
  - ECZEMA [None]
